FAERS Safety Report 5104874-0 (Version None)
Quarter: 2006Q3

REPORT INFORMATION
  Report Type: 
  Country: None (occurrence: None)
  Receive Date: 20060914
  Receipt Date: 20060830
  Transmission Date: 20061208
  Serious: Yes (Hospitalization)
  Sender: FDA-Public Use
  Company Number: FR-ROCHE-461569

PATIENT
  Age: 78 Year
  Sex: Female

DRUGS (11)
  1. ROCEPHIN [Suspect]
     Indication: BRONCHOPNEUMOPATHY
     Route: 058
     Dates: start: 20060722, end: 20060727
  2. ROCEPHIN [Suspect]
     Dosage: DOSAGE WAS INCREASED.
     Route: 058
     Dates: start: 20060728, end: 20060808
  3. TAVANIC [Suspect]
     Indication: DRUG USE FOR UNKNOWN INDICATION
     Route: 048
     Dates: start: 20060728, end: 20060808
  4. NOROXIN [Suspect]
     Indication: BRONCHOPNEUMOPATHY
     Route: 048
     Dates: start: 20060722, end: 20060724
  5. OFLOCET [Suspect]
     Indication: BRONCHOPNEUMOPATHY
     Route: 048
     Dates: start: 20060722, end: 20060724
  6. COLCHIMAX [Suspect]
     Indication: DRUG USE FOR UNKNOWN INDICATION
     Route: 048
     Dates: start: 20060802
  7. COLCHIMAX [Suspect]
     Dosage: LONG TIME TREATMENT PRIOR TO 22 JULY 2006.
     Route: 048
  8. COLCHIMAX [Suspect]
     Route: 048
     Dates: start: 20060731, end: 20060731
  9. COLCHIMAX [Suspect]
     Route: 048
     Dates: start: 20060801, end: 20060801
  10. PRIMPERAN TAB [Concomitant]
     Dates: start: 20060803, end: 20060807
  11. MOTILIUM [Concomitant]
     Dates: start: 20060803, end: 20060807

REACTIONS (7)
  - BLOOD PRESSURE DECREASED [None]
  - CLOSTRIDIUM DIFFICILE COLITIS [None]
  - DYSPNOEA [None]
  - GENERAL PHYSICAL HEALTH DETERIORATION [None]
  - HEPATITIS [None]
  - NEUTROPENIA [None]
  - RED BLOOD CELL COUNT DECREASED [None]
